FAERS Safety Report 24758663 (Version 1)
Quarter: 2024Q4

REPORT INFORMATION
  Report Type: Spontaneous
  Country: US (occurrence: US)
  Receive Date: 20241220
  Receipt Date: 20241220
  Transmission Date: 20250115
  Serious: No
  Sender: ELI LILLY AND COMPANY
  Company Number: US-ELI_LILLY_AND_COMPANY-US202412013599

PATIENT
  Age: 65 Year
  Sex: Male

DRUGS (4)
  1. TRULICITY [Suspect]
     Active Substance: DULAGLUTIDE
     Indication: Product used for unknown indication
     Dosage: UNK UNK, UNKNOWN
     Route: 065
  2. OFEV [Concomitant]
     Active Substance: NINTEDANIB
     Indication: Idiopathic pulmonary fibrosis
     Dosage: 300 MG, DAILY
     Route: 048
     Dates: start: 20240214
  3. OFEV [Concomitant]
     Active Substance: NINTEDANIB
     Dosage: 300 MG, DAILY
     Route: 048
  4. OFEV [Concomitant]
     Active Substance: NINTEDANIB
     Dosage: 300 MG, DAILY
     Route: 048

REACTIONS (4)
  - Bowel movement irregularity [Unknown]
  - Weight decreased [Unknown]
  - Insomnia [Unknown]
  - Abdominal pain lower [Recovered/Resolved]

NARRATIVE: CASE EVENT DATE: 20240315
